FAERS Safety Report 8529536-9 (Version None)
Quarter: 2012Q3

REPORT INFORMATION
  Report Type: 
  Country: None (occurrence: None)
  Receive Date: 20120723
  Receipt Date: 20120710
  Transmission Date: 20120928
  Serious: Yes (Hospitalization)
  Sender: FDA-Public Use
  Company Number: FR-EISAI INC-E7389-02687-CLI-FR

PATIENT
  Sex: Male
  Weight: 48 kg

DRUGS (1)
  1. EPIRUBICIN HYDROCHLORIDE [Suspect]
     Route: 041
     Dates: start: 20120118

REACTIONS (2)
  - SEPTIC SHOCK [None]
  - RESPIRATORY DISTRESS [None]
